FAERS Safety Report 8612967-6 (Version None)
Quarter: 2012Q3

REPORT INFORMATION
  Report Type: 
  Country: None (occurrence: None)
  Receive Date: 20120822
  Receipt Date: 20120816
  Transmission Date: 20120928
  Serious: Yes (Other)
  Sender: FDA-Public Use
  Company Number: US-UCBSA-062966

PATIENT
  Age: 29 Year
  Sex: Female

DRUGS (1)
  1. CIMZIA [Suspect]
     Route: 058
     Dates: start: 20120714

REACTIONS (1)
  - INFECTIOUS MONONUCLEOSIS [None]
